FAERS Safety Report 4439209-X (Version None)
Quarter: 2004Q3

REPORT INFORMATION
  Report Type: 
  Country: None (occurrence: None)
  Receive Date: 20040831
  Receipt Date: 20040818
  Transmission Date: 20050211
  Serious: Yes (Hospitalization, Other)
  Sender: FDA-Public Use
  Company Number: 2004057594

PATIENT
  Age: 81 Year
  Sex: Female
  Weight: 56.6996 kg

DRUGS (9)
  1. ZOLOFT [Suspect]
     Indication: DEPRESSION
     Dosage: 50 MG (50 MG, 1 IN 1 D), ORAL
     Route: 048
     Dates: start: 20030101
  2. METOPROLOL (METOPROLOL) [Concomitant]
  3. ISOSORBIDE MONONITRATE [Concomitant]
  4. ALENDRONATE SODIUM [Concomitant]
  5. LANSOPRAZOLE [Concomitant]
  6. ACETYLSALICYLIC ACID SRT [Concomitant]
  7. SIMVASTATIN [Concomitant]
  8. CLOPIDOGREL BISULFATE [Concomitant]
  9. AMLODIPINE BESYLATE [Concomitant]

REACTIONS (4)
  - ARTHRITIS [None]
  - CONDITION AGGRAVATED [None]
  - FALL [None]
  - HIP FRACTURE [None]
